FAERS Safety Report 6874599-X (Version None)
Quarter: 2010Q3

REPORT INFORMATION
  Report Type: 
  Country: None (occurrence: None)
  Receive Date: 20100722
  Receipt Date: 20100707
  Transmission Date: 20110219
  Serious: Yes (Death, Other)
  Sender: FDA-Public Use
  Company Number: 2010002579

PATIENT
  Age: 67 Year
  Sex: Female

DRUGS (2)
  1. TARCEVA [Suspect]
     Indication: PANCREATIC CARCINOMA
     Dosage: (100 MG, QD), ORAL
     Route: 048
     Dates: start: 20091024, end: 20100227
  2. GEMZAR [Concomitant]

REACTIONS (4)
  - ASTHENIA [None]
  - CARDIOVASCULAR INSUFFICIENCY [None]
  - RASH [None]
  - RESPIRATORY FAILURE [None]
